FAERS Safety Report 15938430 (Version 1)
Quarter: 2019Q1

REPORT INFORMATION
  Report Type: Spontaneous
  Country: US (occurrence: US)
  Receive Date: 20190208
  Receipt Date: 20190208
  Transmission Date: 20190417
  Serious: No
  Sender: FDA-Public Use
  Company Number: US-ROCHE-2212151

PATIENT
  Age: 72 Year
  Sex: Male
  Weight: 91.25 kg

DRUGS (12)
  1. XOLAIR [Suspect]
     Active Substance: OMALIZUMAB
     Dosage: WENT BACK UP TO GETTING 4 SHOTS, IV PUSH ;ONGOING: YES
     Route: 042
     Dates: start: 20181019
  2. XOLAIR [Suspect]
     Active Substance: OMALIZUMAB
     Dosage: ONLY GOT 1 SHOT, IV PUSH ;ONGOING: NO
     Route: 042
     Dates: start: 20181005, end: 20181005
  3. ASPIRIN. [Concomitant]
     Active Substance: ASPIRIN
     Indication: OROPHARYNGEAL PAIN
  4. FEXOFENADINE [Concomitant]
     Active Substance: FEXOFENADINE\FEXOFENADINE HYDROCHLORIDE
     Indication: HYPERSENSITIVITY
     Dosage: TAKE 1X/DAY-SOMETIMES 2X/DAY;SUPPOSED TO TAKE 2X/D ;ONGOING: YES
     Route: 065
  5. ASPIRIN. [Concomitant]
     Active Substance: ASPIRIN
     Indication: HEADACHE
     Dosage: TAKES ONCE IN A WHILE FOR HEADACHE; SORE THROAT ;ONGOING: UNKNOWN
     Route: 065
  6. XOLAIR [Suspect]
     Active Substance: OMALIZUMAB
     Indication: ASTHMA
     Dosage: GETS 4 SHOTS, 2 IN EACH ARM, IV PUSH ;ONGOING: NO
     Route: 042
     Dates: start: 20180419, end: 20180921
  7. SPIRIVA [Suspect]
     Active Substance: TIOTROPIUM BROMIDE MONOHYDRATE
     Indication: PRODUCT USED FOR UNKNOWN INDICATION
     Dosage: ONGOING:NO
     Route: 065
     Dates: end: 201807
  8. SIMBICORT [Concomitant]
     Active Substance: BUDESONIDE\FORMOTEROL FUMARATE
     Indication: ASTHMA
     Dosage: TOOK 2 PUFFS IN MORNING AND 2 PUFFS IN EVENING ;ONGOING: NO
     Route: 055
  9. SIMBICORT [Concomitant]
     Active Substance: BUDESONIDE\FORMOTEROL FUMARATE
     Dosage: TAKES 1 PUFF IN MORNING AND 1 PUFF IN EVENING ;ONGOING: YES
     Route: 055
  10. SINGULAIR [Concomitant]
     Active Substance: MONTELUKAST SODIUM
     Indication: ASTHMA
     Dosage: TOOK AT NIGHT ;ONGOING: NO
     Route: 065
     Dates: end: 20181103
  11. PROAIR (ALBUTEROL) [Concomitant]
     Indication: ASTHMA
     Dosage: ONGOING: NO
     Route: 055
  12. PROAIR (ALBUTEROL) [Concomitant]
     Dosage: TAKES IN MORNING ;ONGOING: YES
     Route: 055

REACTIONS (8)
  - Abdominal pain upper [Unknown]
  - Dyspnoea [Unknown]
  - Pyrexia [Recovered/Resolved]
  - Prostatic pain [Unknown]
  - Cough [Unknown]
  - Malaise [Unknown]
  - Diarrhoea [Unknown]
  - Oropharyngeal pain [Recovering/Resolving]

NARRATIVE: CASE EVENT DATE: 201806
